FAERS Safety Report 7854351-9 (Version None)
Quarter: 2011Q3

REPORT INFORMATION
  Report Type: 
  Country: None (occurrence: None)
  Receive Date: 20110916
  Receipt Date: 20101102
  Transmission Date: 20111222
  Serious: Yes (Other)
  Sender: FDA-Public Use
  Company Number: 2010SP058281

PATIENT
  Age: 21 Year
  Sex: Female

DRUGS (2)
  1. SEASONIQUE [Concomitant]
  2. IMPLANON [Suspect]
     Indication: CONTRACEPTION
     Dosage: 68 MG;SBDE
     Route: 059
     Dates: start: 20100622

REACTIONS (3)
  - PREGNANCY WITH IMPLANT CONTRACEPTIVE [None]
  - ABDOMINAL PAIN [None]
  - OVARIAN CYST [None]
